FAERS Safety Report 11786541 (Version 2)
Quarter: 2015Q4

REPORT INFORMATION
  Report Type: Report from Study
  Country: BR (occurrence: BR)
  Receive Date: 20151130
  Receipt Date: 20151230
  Transmission Date: 20160305
  Serious: Yes (Other)
  Sender: FDA-Public Use
  Company Number: PHHY2015BR154836

PATIENT
  Sex: Male
  Weight: 90 kg

DRUGS (6)
  1. TRILEPTAL [Suspect]
     Active Substance: OXCARBAZEPINE
     Indication: EPILEPSY
     Dosage: 01 TABLET PER DAY ? THREE TIMES PER DAY
     Route: 048
  2. OXCARBAZEPINE. [Suspect]
     Active Substance: OXCARBAZEPINE
     Indication: EPILEPSY
  3. RIVOTRIL [Concomitant]
     Active Substance: CLONAZEPAM
     Indication: HYDROCEPHALUS
     Dosage: 1 DF, TID
     Route: 048
  4. TRILEPTAL [Suspect]
     Active Substance: OXCARBAZEPINE
     Indication: HYDROCEPHALUS
  5. OXCARBAZEPINE. [Suspect]
     Active Substance: OXCARBAZEPINE
     Indication: HYDROCEPHALUS
     Dosage: 600 MG, TID
     Route: 048
  6. RIVOTRIL [Concomitant]
     Active Substance: CLONAZEPAM
     Indication: EPILEPSY

REACTIONS (6)
  - Balance disorder [Recovering/Resolving]
  - Epilepsy [Not Recovered/Not Resolved]
  - Dizziness [Recovering/Resolving]
  - Malaise [Recovered/Resolved]
  - Disorientation [Not Recovered/Not Resolved]
  - Overweight [Not Recovered/Not Resolved]
